FAERS Safety Report 5263552-8 (Version None)
Quarter: 2007Q1

REPORT INFORMATION
  Report Type: 
  Country: None (occurrence: None)
  Receive Date: 20070313
  Receipt Date: 20070228
  Transmission Date: 20070707
  Serious: Yes (Hospitalization)
  Sender: FDA-Public Use
  Company Number: PHBS2007ZA03026

PATIENT
  Age: 74 Year
  Sex: Male

DRUGS (3)
  1. PARLODEL [Suspect]
     Indication: PARKINSON'S DISEASE
     Dosage: 2.5 MG, TID
     Route: 048
     Dates: start: 20070214, end: 20070216
  2. SYMMETREL [Suspect]
     Indication: PARKINSON'S DISEASE
     Dosage: 200 MG, QD
     Route: 048
     Dates: start: 20070214, end: 20070216
  3. CARBILEV [Concomitant]
     Indication: PARKINSON'S DISEASE

REACTIONS (5)
  - ANGINA PECTORIS [None]
  - BLOOD PRESSURE DECREASED [None]
  - CARDIAC DISCOMFORT [None]
  - FEELING ABNORMAL [None]
  - PRESCRIBED OVERDOSE [None]
